FAERS Safety Report 5221461-4 (Version None)
Quarter: 2007Q1

REPORT INFORMATION
  Report Type: 
  Country: None (occurrence: None)
  Receive Date: 20070126
  Receipt Date: 20070115
  Transmission Date: 20070707
  Serious: Yes (Other)
  Sender: FDA-Public Use
  Company Number: US-SHR-US-2006-038324

PATIENT
  Age: 55 Year
  Sex: Female
  Weight: 93.878 kg

DRUGS (21)
  1. BETASERON [Suspect]
     Indication: RELAPSING-REMITTING MULTIPLE SCLEROSIS
     Dosage: 8 MIU, EVERY 2D
     Route: 058
     Dates: start: 20010606
  2. CLONIDINE HCL [Concomitant]
     Dosage: .1 MG, 3X/DAY
  3. HYDROCHLOROTHIAZIDE [Concomitant]
     Dosage: 6 MG/D, UNK
  4. POTASSIUM CHLORIDE [Concomitant]
     Dosage: 8 MEQ, EVERY 2D
     Route: 048
  5. LISINOPRIL [Concomitant]
     Dosage: 20 MG/D, UNK
  6. NEURONTIN [Concomitant]
     Dosage: 400 MG, 3X/DAY
  7. ARICEPT [Concomitant]
     Dosage: 10 MG/D, A.M.
  8. BACLOFEN [Concomitant]
     Dosage: 10 MG, 3X/DAY
  9. TRAZODONE HCL [Concomitant]
     Dosage: 150 MG/D, P.M.
  10. PROVIGIL [Concomitant]
     Dosage: 400 MG/D, UNK
  11. CITALOPRAM HYDROBROMIDE [Concomitant]
     Dosage: 40 MG/D, UNK
  12. DETROL [Concomitant]
     Dosage: 4 MG, 2X/DAY
  13. OMEPRAZOLE NA [Concomitant]
     Dosage: 20 MG, 2X/DAY
  14. ZOCOR [Concomitant]
     Dosage: 40 MG/D, P.M.
  15. COENZYME Q10 [Concomitant]
     Dosage: UNK, 1X/DAY
  16. L-LYSINE [Concomitant]
     Dosage: UNK, 1X/DAY
  17. MILK THISTLE [Concomitant]
     Dosage: UNK, 2X/DAY
  18. FOSAMAX [Concomitant]
     Dosage: 70 MG, 1X/WEEK
  19. LORATADINE [Concomitant]
     Dosage: 10 MG/D, AS REQ'D
  20. NORCO [Concomitant]
     Dosage: 10/325MG, 3X/DAY AS REQUIRED
  21. VALIUM [Concomitant]
     Dosage: 10 MG/D, P.M.

REACTIONS (2)
  - MACULOPATHY [None]
  - RETINAL DEGENERATION [None]
